FAERS Safety Report 6888158-6 (Version None)
Quarter: 2010Q3

REPORT INFORMATION
  Report Type: 
  Country: None (occurrence: None)
  Receive Date: 20100730
  Receipt Date: 20100723
  Transmission Date: 20110219
  Serious: Yes (Other)
  Sender: FDA-Public Use
  Company Number: US-PFIZER INC-2010093521

PATIENT
  Sex: Female
  Weight: 86 kg

DRUGS (3)
  1. CELEBREX [Suspect]
     Indication: BACK PAIN
     Dosage: 200 MG, DAILY
     Route: 048
     Dates: start: 20100706, end: 20100719
  2. CELEBREX [Suspect]
     Indication: SPINAL DISORDER
  3. DEPAKOTE [Concomitant]
     Dosage: UNK

REACTIONS (3)
  - BLISTER [None]
  - IMPAIRED WORK ABILITY [None]
  - RASH GENERALISED [None]
